FAERS Safety Report 10552601 (Version 1)
Quarter: 2014Q4

REPORT INFORMATION
  Report Type: Spontaneous
  Country: DK (occurrence: DK)
  Receive Date: 20141029
  Receipt Date: 20141029
  Transmission Date: 20150529
  Serious: Yes (Hospitalization)
  Sender: FDA-Public Use
  Company Number: DK-ASTRAZENECA-2014SE79915

PATIENT
  Age: 909 Month
  Sex: Female

DRUGS (12)
  1. FURIX [Concomitant]
     Active Substance: FUROSEMIDE
     Indication: DIURETIC THERAPY
  2. CORDARONE [Concomitant]
     Active Substance: AMIODARONE HYDROCHLORIDE
     Indication: ARRHYTHMIA
  3. FLUCONAZOL ^KRKA^ [Concomitant]
     Indication: FUNGAL INFECTION
  4. INSUMAN RAPID SOLOSTAR [Concomitant]
     Indication: DIABETES MELLITUS
  5. PAMOL [Concomitant]
     Active Substance: ACETAMINOPHEN
     Indication: PAIN
  6. HJERTEMAGNYL [Concomitant]
     Active Substance: ASPIRIN\MAGNESIUM OXIDE
     Indication: ANTICOAGULANT THERAPY
  7. NITROLINGUAL [Concomitant]
     Active Substance: NITROGLYCERIN
     Indication: ANGINA PECTORIS
  8. LANTUS SOLOSTAR [Concomitant]
     Active Substance: INSULIN GLARGINE
     Indication: DIABETES MELLITUS
  9. RAMIPRIL ^STADA^ [Concomitant]
     Indication: HYPERTENSION
  10. BRILIQUE [Suspect]
     Active Substance: TICAGRELOR
     Indication: THROMBOSIS PROPHYLAXIS
     Route: 048
     Dates: start: 20140707, end: 20140916
  11. NOVORAPID [Concomitant]
     Active Substance: INSULIN ASPART
     Indication: DIABETES MELLITUS
  12. ZOPICLONE ^ACTAVIS^ [Concomitant]
     Indication: INSOMNIA

REACTIONS (6)
  - Diarrhoea [Recovered/Resolved]
  - Large intestinal stenosis [Unknown]
  - Gastrointestinal inflammation [Unknown]
  - Large intestinal ulcer haemorrhage [Unknown]
  - Abdominal pain [Unknown]
  - Oedema mucosal [Unknown]

NARRATIVE: CASE EVENT DATE: 201408
